FAERS Safety Report 9465345 (Version 1)
Quarter: 2013Q3

REPORT INFORMATION
  Report Type: Spontaneous
  Country: US (occurrence: US)
  Receive Date: 20130820
  Receipt Date: 20130820
  Transmission Date: 20140515
  Serious: Yes (Hospitalization)
  Sender: FDA-Public Use
  Company Number: US-BIOGENIDEC-2013BI075580

PATIENT
  Age: 53 Year
  Sex: Female

DRUGS (2)
  1. AVONEX [Suspect]
     Indication: MULTIPLE SCLEROSIS
     Route: 030
     Dates: start: 20080822
  2. ALEVE [Concomitant]
     Indication: PREMEDICATION

REACTIONS (7)
  - Ovarian clear cell carcinoma [Recovered/Resolved]
  - Aphasia [Recovered/Resolved]
  - Mobility decreased [Recovered/Resolved]
  - Wrong technique in drug usage process [Unknown]
  - Feeling cold [Recovered/Resolved]
  - Chills [Unknown]
  - Fatigue [Not Recovered/Not Resolved]
